FAERS Safety Report 11972839 (Version 1)
Quarter: 2016Q1

REPORT INFORMATION
  Report Type: Spontaneous
  Country: CA (occurrence: CA)
  Receive Date: 20160128
  Receipt Date: 20160128
  Transmission Date: 20160526
  Serious: Yes (Hospitalization)
  Sender: FDA-Public Use
  Company Number: CA-TEVA-628571ACC

PATIENT
  Age: 17 Year
  Sex: Female
  Weight: 52 kg

DRUGS (2)
  1. EPIVAL [Concomitant]
     Active Substance: DIVALPROEX SODIUM
  2. DIVALPROEX SODIUM. [Suspect]
     Active Substance: DIVALPROEX SODIUM
     Indication: BIPOLAR I DISORDER
     Route: 065

REACTIONS (4)
  - Nausea [Unknown]
  - Product substitution issue [Unknown]
  - Vomiting [Unknown]
  - Enzyme level increased [Unknown]
